FAERS Safety Report 6983698-3 (Version None)
Quarter: 2010Q3

REPORT INFORMATION
  Report Type: 
  Country: None (occurrence: None)
  Receive Date: 20100914
  Receipt Date: 20051125
  Transmission Date: 20110219
  Serious: Yes (Hospitalization)
  Sender: FDA-Public Use
  Company Number: US-WYE-H07144208

PATIENT

DRUGS (3)
  1. ADVIL LIQUI-GELS [Suspect]
     Dosage: UNKNOWN
     Route: 065
     Dates: start: 20001106
  2. ALEVE (CAPLET) [Suspect]
  3. VIOXX [Suspect]
     Dosage: UNKNOWN
     Route: 048
     Dates: end: 20001106

REACTIONS (1)
  - GASTROINTESTINAL HAEMORRHAGE [None]
